FAERS Safety Report 9798002 (Version 2)
Quarter: 2014Q1

REPORT INFORMATION
  Report Type: Report from Study
  Country: CA (occurrence: CA)
  Receive Date: 20140106
  Receipt Date: 20140114
  Transmission Date: 20141002
  Serious: Yes (Death, Hospitalization, Other)
  Sender: FDA-Public Use
  Company Number: PHHY2014CA000652

PATIENT
  Age: 71 Year
  Sex: Female

DRUGS (4)
  1. CLOZARIL [Suspect]
     Indication: SCHIZOPHRENIA
     Dosage: UNK
     Dates: start: 20120427
  2. ASA [Concomitant]
     Dosage: 81 MG, DAILY
  3. LIPITOR [Concomitant]
     Dosage: 20 MG, DAILY
  4. ZOLOFT [Concomitant]
     Dosage: 150 MG, DAILY

REACTIONS (5)
  - Cardiac failure congestive [Fatal]
  - Cardiac arrest [Fatal]
  - Pneumonia [Fatal]
  - Unresponsive to stimuli [Unknown]
  - Loss of consciousness [Unknown]
